FAERS Safety Report 16732373 (Version 2)
Quarter: 2019Q3

REPORT INFORMATION
  Report Type: Spontaneous
  Country: US (occurrence: US)
  Receive Date: 20190822
  Receipt Date: 20190926
  Transmission Date: 20191005
  Serious: No
  Sender: FDA-Public Use
  Company Number: US-ASTRAZENECA-2019SF08880

PATIENT
  Age: 14811 Day
  Sex: Female
  Weight: 113.4 kg

DRUGS (7)
  1. BYDUREON [Suspect]
     Active Substance: EXENATIDE
     Indication: TYPE 2 DIABETES MELLITUS
     Dosage: GENERIC
     Route: 065
  2. METFORMIN [Concomitant]
     Active Substance: METFORMIN HYDROCHLORIDE
     Indication: TYPE 2 DIABETES MELLITUS
     Dosage: 500.0MG UNKNOWN
     Dates: start: 20190711
  3. BYDUREON BCISE [Suspect]
     Active Substance: EXENATIDE
     Indication: TYPE 2 DIABETES MELLITUS
     Route: 058
     Dates: start: 20190726
  4. LOSARTAN. [Concomitant]
     Active Substance: LOSARTAN
     Indication: HYPERTENSION
     Dosage: 25.0MG UNKNOWN
     Dates: start: 20190823
  5. BYDUREON [Suspect]
     Active Substance: EXENATIDE
     Indication: TYPE 2 DIABETES MELLITUS
     Dosage: 2 MG/0.65 ML DAILY
     Route: 058
     Dates: start: 20190629, end: 201907
  6. BYDUREON [Suspect]
     Active Substance: EXENATIDE
     Indication: TYPE 2 DIABETES MELLITUS
     Dosage: 2 MG/0.65 ML DAILY
     Route: 058
     Dates: start: 20190626, end: 20190714
  7. ATORVASTATIN [Concomitant]
     Active Substance: ATORVASTATIN
     Indication: HYPERLIPIDAEMIA
     Dosage: 40.0MG UNKNOWN
     Dates: start: 20190723

REACTIONS (10)
  - Device use issue [Unknown]
  - Erythema [Recovered/Resolved]
  - Swelling [Recovered/Resolved]
  - Injury associated with device [Recovered/Resolved]
  - Injection site extravasation [Unknown]
  - Contusion [Not Recovered/Not Resolved]
  - Pruritus [Recovering/Resolving]
  - Skin irritation [Recovered/Resolved]
  - Nodule [Not Recovered/Not Resolved]
  - Pain [Recovered/Resolved]

NARRATIVE: CASE EVENT DATE: 20190629
